FAERS Safety Report 7569543-6 (Version None)
Quarter: 2011Q2

REPORT INFORMATION
  Report Type: 
  Country: None (occurrence: None)
  Receive Date: 20110624
  Receipt Date: 20110614
  Transmission Date: 20111010
  Serious: Yes (Other)
  Sender: FDA-Public Use
  Company Number: US-BRISTOL-MYERS SQUIBB COMPANY-15846892

PATIENT

DRUGS (2)
  1. BARACLUDE [Suspect]
  2. STEROIDS [Suspect]

REACTIONS (1)
  - HEPATITIS B [None]
